FAERS Safety Report 7692553-5 (Version None)
Quarter: 2011Q3

REPORT INFORMATION
  Report Type: 
  Country: None (occurrence: None)
  Receive Date: 20110819
  Receipt Date: 20110809
  Transmission Date: 20111222
  Serious: Yes (Disabling, Other)
  Sender: FDA-Public Use
  Company Number: FR-AMGEN-FRASP2011040784

PATIENT
  Age: 59 Year
  Sex: Male
  Weight: 82 kg

DRUGS (4)
  1. ENBREL [Suspect]
     Indication: ANKYLOSING SPONDYLITIS
     Dosage: 50 MG EVERY 1.5 WEEKS (TOTAL DOSE GIVEN ON AVERAGE 10 G)
     Route: 058
     Dates: start: 20041001
  2. UVEDOSE [Concomitant]
     Dosage: UNK
  3. FENOFIBRATE [Suspect]
     Dosage: UNK
     Route: 048
     Dates: start: 20080101
  4. MOBIC [Concomitant]
     Dosage: OCCASIONALLY

REACTIONS (1)
  - RETINAL DETACHMENT [None]
